FAERS Safety Report 5205390-8 (Version None)
Quarter: 2007Q1

REPORT INFORMATION
  Report Type: 
  Country: None (occurrence: None)
  Receive Date: 20070108
  Receipt Date: 20061226
  Transmission Date: 20070707
  Serious: Yes (Hospitalization)
  Sender: FDA-Public Use
  Company Number: 2006BI018992

PATIENT
  Age: 46 Year
  Sex: Female

DRUGS (1)
  1. AVONEX [Suspect]
     Indication: MULTIPLE SCLEROSIS
     Dosage: 30 UG;QW;IM
     Route: 030
     Dates: start: 20010815, end: 20061201

REACTIONS (5)
  - HEART RATE INCREASED [None]
  - MIGRAINE [None]
  - MYOCARDITIS [None]
  - PNEUMONIA [None]
  - RESPIRATORY DISTRESS [None]
